FAERS Safety Report 8780277 (Version 1)
Quarter: 2012Q4

REPORT INFORMATION
  Report Type: Spontaneous
  Country: US (occurrence: None)
  Receive Date: 20120905
  Receipt Date: 20120905
  Transmission Date: 20130627
  Serious: Yes (Life-Threatening, Disabling)
  Sender: FDA-Public Use
  Company Number: None

PATIENT
  Age: 55 Year
  Sex: Female
  Weight: 73.03 kg

DRUGS (1)
  1. FANAPT [Suspect]
     Indication: DRUG USE FOR UNKNOWN INDICATION
     Route: 048
     Dates: start: 200806, end: 20120614

REACTIONS (6)
  - Tachycardia [None]
  - Bradycardia [None]
  - Vomiting [None]
  - Loss of consciousness [None]
  - Amnesia [None]
  - Memory impairment [None]
